FAERS Safety Report 19876705 (Version 8)
Quarter: 2022Q2

REPORT INFORMATION
  Report Type: Report from Study
  Country: US (occurrence: US)
  Receive Date: 20210923
  Receipt Date: 20220409
  Transmission Date: 20220721
  Serious: Yes (Other)
  Sender: FDA-Public Use
  Company Number: NVSC2021US212724

PATIENT
  Sex: Female

DRUGS (2)
  1. ENTRESTO [Suspect]
     Active Substance: SACUBITRIL\VALSARTAN
     Indication: Product used for unknown indication
     Dosage: 1 DOSAGE FORM (24/26MG), BID
     Route: 048
     Dates: start: 2020
  2. NITROGLYCERIN [Suspect]
     Active Substance: NITROGLYCERIN
     Indication: Product used for unknown indication
     Dosage: UNK
     Route: 065

REACTIONS (25)
  - Hip fracture [Recovering/Resolving]
  - Angina pectoris [Unknown]
  - Renal cancer stage IV [Not Recovered/Not Resolved]
  - Kidney infection [Recovering/Resolving]
  - Chronic kidney disease [Unknown]
  - Sluggishness [Unknown]
  - Gait disturbance [Unknown]
  - Illness [Unknown]
  - Blood phosphorus increased [Unknown]
  - Aphasia [Unknown]
  - Palpitations [Recovering/Resolving]
  - Urinary tract infection [Unknown]
  - Pyrexia [Recovering/Resolving]
  - Tremor [Recovering/Resolving]
  - Incontinence [Recovering/Resolving]
  - Dehydration [Recovering/Resolving]
  - Fall [Recovering/Resolving]
  - Pruritus [Unknown]
  - Fatigue [Unknown]
  - Hypotension [Unknown]
  - Dizziness [Unknown]
  - Glomerular filtration rate decreased [Unknown]
  - Anaemia [Unknown]
  - Chest pain [Unknown]
  - Product dose omission issue [Unknown]
